FAERS Safety Report 9699060 (Version 4)
Quarter: 2013Q4

REPORT INFORMATION
  Report Type: Spontaneous
  Country: JP (occurrence: JP)
  Receive Date: 20131120
  Receipt Date: 20131226
  Transmission Date: 20140711
  Serious: Yes (Life-Threatening, Hospitalization, Other)
  Sender: FDA-Public Use
  Company Number: JP-TEVA-401960USA

PATIENT
  Age: 63 Year
  Sex: Male
  Weight: 62 kg

DRUGS (14)
  1. BENDAMUSTINE [Suspect]
     Indication: LYMPHOPLASMACYTOID LYMPHOMA/IMMUNOCYTOMA RECURRENT
     Dosage: UID/QD
     Route: 042
     Dates: start: 20121108, end: 20121109
  2. BENDAMUSTINE [Suspect]
     Dosage: UID/QD
     Route: 042
     Dates: start: 20121205, end: 20121206
  3. BENDAMUSTINE [Suspect]
     Dosage: UID/QD
     Route: 042
     Dates: start: 20130109, end: 20130110
  4. BENDAMUSTINE [Suspect]
     Dosage: UID/QD
     Route: 042
     Dates: start: 20130325, end: 20130326
  5. RITUXIMAB [Concomitant]
     Dates: start: 20121107
  6. RITUXIMAB [Concomitant]
     Dates: start: 20121204
  7. RITUXIMAB [Concomitant]
     Dates: start: 20130108
  8. RITUXIMAB [Concomitant]
     Dates: start: 20130322
  9. CYCLOPHOSPHAMIDE MONOHYDRATE [Concomitant]
     Dosage: G/M2
     Route: 042
     Dates: start: 20130206, end: 20130207
  10. ALLOPURINOL [Concomitant]
     Dosage: 100 MILLIGRAM DAILY;
     Route: 048
     Dates: start: 20130318
  11. SULFAMETHOXAZOLE W/TRIMETHOPRIM [Concomitant]
     Dosage: 1 DOSAGE FORMS DAILY;
     Route: 048
     Dates: start: 20130318
  12. ITRACONAZOLE [Concomitant]
     Route: 048
     Dates: start: 20130318, end: 20130501
  13. ITRACONAZOLE [Concomitant]
     Route: 048
     Dates: start: 20130502
  14. SODIUM RABEPRAZOLE [Concomitant]
     Dosage: 10 MILLIGRAM DAILY;
     Route: 048
     Dates: start: 20130318

REACTIONS (3)
  - Uveitis [Unknown]
  - Optic neuritis [Unknown]
  - Pneumonia cytomegaloviral [Recovering/Resolving]
